FAERS Safety Report 23793262 (Version 1)
Quarter: 2024Q2

REPORT INFORMATION
  Report Type: Spontaneous
  Country: CA (occurrence: CA)
  Receive Date: 20240429
  Receipt Date: 20240429
  Transmission Date: 20240716
  Serious: Yes (Life-Threatening, Hospitalization, Other)
  Sender: FDA-Public Use
  Company Number: None

PATIENT
  Age: 76 Year
  Sex: Male

DRUGS (3)
  1. FLUOXETINE [Suspect]
     Active Substance: FLUOXETINE HYDROCHLORIDE
     Indication: Substance use disorder
     Route: 065
  2. METHADOSE [Suspect]
     Active Substance: METHADONE HYDROCHLORIDE
     Indication: Substance use disorder
     Route: 048
  3. BUPRENORPHINE [Concomitant]
     Active Substance: BUPRENORPHINE
     Indication: Substance use disorder
     Route: 065

REACTIONS (8)
  - Cardiac arrest [Recovering/Resolving]
  - Coma scale abnormal [Recovering/Resolving]
  - Coronary artery disease [Recovering/Resolving]
  - Electrocardiogram QT prolonged [Recovering/Resolving]
  - Endotracheal intubation [Recovering/Resolving]
  - Left ventricular failure [Recovering/Resolving]
  - Seizure [Recovering/Resolving]
  - Torsade de pointes [Recovering/Resolving]
